FAERS Safety Report 19447063 (Version 1)
Quarter: 2021Q2

REPORT INFORMATION
  Report Type: Spontaneous
  Country: US (occurrence: US)
  Receive Date: 20210622
  Receipt Date: 20210622
  Transmission Date: 20210717
  Serious: No
  Sender: FDA-Public Use
  Company Number: US-HIKMA PHARMACEUTICALS USA INC.-US-H14001-21-02026

PATIENT
  Age: 57 Year
  Sex: Male
  Weight: 81.63 kg

DRUGS (2)
  1. FLUTICASONE. [Suspect]
     Active Substance: FLUTICASONE
     Indication: SEASONAL ALLERGY
     Dosage: TWO SPRAYS, TWICE DAILY, AS NEEDED
     Route: 045
     Dates: start: 2018, end: 20210413
  2. FLUTICASONE. [Suspect]
     Active Substance: FLUTICASONE
     Dosage: SINGLE
     Route: 047
     Dates: start: 20210414, end: 20210414

REACTIONS (4)
  - Vision blurred [Not Recovered/Not Resolved]
  - Exposure via eye contact [Recovered/Resolved]
  - Expired product administered [Recovered/Resolved]
  - Inappropriate schedule of product administration [Recovered/Resolved]

NARRATIVE: CASE EVENT DATE: 20210414
